FAERS Safety Report 7674799 (Version 5)
Quarter: 2013Q2

REPORT INFORMATION
  Report Type: Spontaneous
  Country: JP (occurrence: JP)
  Receive Date: 20101118
  Receipt Date: 20130509
  Transmission Date: 20140414
  Serious: Yes (Hospitalization)
  Sender: FDA-Public Use
  Company Number: JP-PFIZER INC-2010150040

PATIENT
  Age: 61 Year
  Sex: Male

DRUGS (4)
  1. SUTENT [Suspect]
     Indication: METASTATIC RENAL CELL CARCINOMA
     Dosage: 50 MG, 1X/DAY
     Route: 048
     Dates: start: 20091204, end: 20100514
  2. SUTENT [Suspect]
     Dosage: 50 MG, 1X/DAY
     Route: 048
     Dates: start: 20100608, end: 20101001
  3. SUTENT [Suspect]
     Dosage: 25 MG, 1X/DAY
  4. TAGAMET ORAL [Concomitant]
     Indication: GASTRITIS
     Dosage: 20 MG, 2X/DAY
     Route: 048
     Dates: start: 20080722, end: 20101015

REACTIONS (1)
  - Pleural effusion [Recovering/Resolving]
